FAERS Safety Report 6528864-6 (Version None)
Quarter: 2010Q1

REPORT INFORMATION
  Report Type: 
  Country: None (occurrence: None)
  Receive Date: 20100106
  Receipt Date: 20090929
  Transmission Date: 20100710
  Serious: Yes (Hospitalization)
  Sender: FDA-Public Use
  Company Number: ZA-WYE-H10081009

PATIENT
  Sex: Male

DRUGS (10)
  1. CORDARONE [Suspect]
     Route: 065
     Dates: start: 20090520, end: 20090628
  2. WARFARIN [Suspect]
     Indication: CEREBROVASCULAR ACCIDENT PROPHYLAXIS
     Dosage: DOSE UNKNOWN
     Route: 048
     Dates: start: 20090622, end: 20090622
  3. WARFARIN [Suspect]
     Indication: THROMBOSIS PROPHYLAXIS
     Dosage: DOSE UNKNOWN
     Route: 048
     Dates: start: 20090623, end: 20090629
  4. LASIX [Suspect]
     Route: 065
     Dates: start: 20090520
  5. BISOPROLOL FUMARATE [Suspect]
     Route: 065
     Dates: start: 20090520
  6. LANOXIN [Concomitant]
     Dosage: DOSE UNKNOWN
     Route: 065
     Dates: start: 20090520
  7. SLOW-K [Concomitant]
     Dosage: DOSE UNKNOWN
     Route: 065
     Dates: start: 20090520, end: 20090628
  8. PURICOS [Suspect]
     Dosage: DOSE UNKNOWN
     Route: 065
     Dates: start: 20090520, end: 20090628
  9. ENALAPRIL MALEATE [Suspect]
     Dosage: DOSE UNKNOWN
     Route: 065
     Dates: start: 20090520
  10. ENALAPRIL MALEATE [Suspect]
     Route: 065
     Dates: start: 20090706

REACTIONS (2)
  - DRUG RASH WITH EOSINOPHILIA AND SYSTEMIC SYMPTOMS [None]
  - HYPOTENSION [None]
